FAERS Safety Report 24757497 (Version 2)
Quarter: 2025Q1

REPORT INFORMATION
  Report Type: Spontaneous
  Country: US (occurrence: US)
  Receive Date: 20241220
  Receipt Date: 20250102
  Transmission Date: 20250409
  Serious: No
  Sender: ELI LILLY AND COMPANY
  Company Number: US-ELI_LILLY_AND_COMPANY-US202412014278

PATIENT
  Age: 54 Year
  Sex: Male

DRUGS (3)
  1. ZEPBOUND [Suspect]
     Active Substance: TIRZEPATIDE
     Indication: Product used for unknown indication
     Route: 065
     Dates: start: 20241212
  2. CORTISONE [Concomitant]
     Active Substance: CORTISONE
     Indication: Pain
  3. CORTISONE [Concomitant]
     Active Substance: CORTISONE
     Indication: Dehydration

REACTIONS (2)
  - Hypertension [Unknown]
  - Blood cholesterol increased [Unknown]
